FAERS Safety Report 16121384 (Version 4)
Quarter: 2019Q3

REPORT INFORMATION
  Report Type: Spontaneous
  Country: US (occurrence: US)
  Receive Date: 20190327
  Receipt Date: 20190820
  Transmission Date: 20191004
  Serious: No
  Sender: FDA-Public Use
  Company Number: US-BEH-2019100790

PATIENT
  Age: 56 Year
  Sex: Female

DRUGS (13)
  1. HIZENTRA [Suspect]
     Active Substance: HUMAN IMMUNOGLOBULIN G
     Dosage: 14 G, TOT
     Route: 058
     Dates: start: 20190305, end: 20190305
  2. HIZENTRA [Suspect]
     Active Substance: HUMAN IMMUNOGLOBULIN G
     Dosage: 14 G, TOT
     Route: 058
     Dates: start: 20190319, end: 20190319
  3. HIZENTRA [Suspect]
     Active Substance: HUMAN IMMUNOGLOBULIN G
     Dosage: 14 G, TOT
     Route: 058
     Dates: start: 20190325, end: 20190325
  4. HIZENTRA [Suspect]
     Active Substance: HUMAN IMMUNOGLOBULIN G
     Dosage: UNK
     Route: 058
     Dates: start: 20190226, end: 20190226
  5. HIZENTRA [Suspect]
     Active Substance: HUMAN IMMUNOGLOBULIN G
     Dosage: UNK
     Route: 058
     Dates: start: 20190305, end: 20190305
  6. HIZENTRA [Suspect]
     Active Substance: HUMAN IMMUNOGLOBULIN G
     Dosage: UNK
     Route: 058
     Dates: start: 20190325, end: 20190325
  7. HIZENTRA [Suspect]
     Active Substance: HUMAN IMMUNOGLOBULIN G
     Indication: STIFF PERSON SYNDROME
     Dosage: 14 G, QW
     Route: 058
     Dates: start: 20190226, end: 20190325
  8. HIZENTRA [Suspect]
     Active Substance: HUMAN IMMUNOGLOBULIN G
     Dosage: UNK
     Route: 058
     Dates: start: 20190325, end: 20190325
  9. HIZENTRA [Suspect]
     Active Substance: HUMAN IMMUNOGLOBULIN G
     Dosage: UNK
     Route: 058
     Dates: start: 20190226, end: 20190226
  10. HIZENTRA [Suspect]
     Active Substance: HUMAN IMMUNOGLOBULIN G
     Dosage: UNK
     Route: 058
     Dates: start: 20190319, end: 20190319
  11. HIZENTRA [Suspect]
     Active Substance: HUMAN IMMUNOGLOBULIN G
     Dosage: 14 G, TOT
     Route: 058
     Dates: start: 20190226, end: 20190226
  12. HIZENTRA [Suspect]
     Active Substance: HUMAN IMMUNOGLOBULIN G
     Dosage: UNK
     Route: 058
     Dates: start: 20190305, end: 20190305
  13. HIZENTRA [Suspect]
     Active Substance: HUMAN IMMUNOGLOBULIN G
     Dosage: UNK
     Route: 058
     Dates: start: 20190319, end: 20190319

REACTIONS (18)
  - Headache [Recovering/Resolving]
  - Back pain [Recovering/Resolving]
  - No adverse event [Unknown]
  - Fatigue [Recovering/Resolving]
  - Somnolence [Recovering/Resolving]
  - Abdominal pain [Recovering/Resolving]
  - Constipation [Unknown]
  - Constipation [Recovering/Resolving]
  - Swelling [Recovering/Resolving]
  - Abdominal distension [Recovering/Resolving]
  - Abdominal distension [Unknown]
  - Asthenia [Recovering/Resolving]
  - Eating disorder [Recovering/Resolving]
  - Pyrexia [Recovering/Resolving]
  - Abdominal pain upper [Unknown]
  - Product use in unapproved indication [Unknown]
  - Dizziness [Recovering/Resolving]
  - Burning sensation [Recovering/Resolving]

NARRATIVE: CASE EVENT DATE: 2019
